FAERS Safety Report 21874698 (Version 1)
Quarter: 2023Q1

REPORT INFORMATION
  Report Type: Spontaneous
  Country: US (occurrence: None)
  Receive Date: 20230117
  Receipt Date: 20230117
  Transmission Date: 20230418
  Serious: No
  Sender: FDA-Public Use
  Company Number: 2023A009431

PATIENT
  Age: 18291 Day

DRUGS (1)
  1. SAPHNELO [Suspect]
     Active Substance: ANIFROLUMAB-FNIA
     Dosage: UNKNOWN
     Route: 042
     Dates: start: 20230111

REACTIONS (10)
  - Feeling abnormal [Unknown]
  - Gastrointestinal disorder [Unknown]
  - Rectal haemorrhage [Unknown]
  - Abdominal distension [Unknown]
  - Dizziness [Unknown]
  - Pruritus [Unknown]
  - Nausea [Unknown]
  - Fatigue [Unknown]
  - Disorientation [Unknown]
  - Dyspnoea [Unknown]

NARRATIVE: CASE EVENT DATE: 20230111
